FAERS Safety Report 14366616 (Version 2)
Quarter: 2018Q2

REPORT INFORMATION
  Report Type: Report from Study
  Country: US (occurrence: US)
  Receive Date: 20180109
  Receipt Date: 20180516
  Transmission Date: 20180711
  Serious: Yes (Hospitalization)
  Sender: FDA-Public Use
  Company Number: US-BAYER-2017-217028

PATIENT
  Age: 76 Year
  Sex: Female

DRUGS (14)
  1. NEXAVAR [Suspect]
     Active Substance: SORAFENIB
     Indication: HEPATOCELLULAR CARCINOMA
     Dosage: 200 MG, QD
     Route: 048
     Dates: end: 201711
  2. DIPHENOXYLATE W/ATROPINE SULFATE [Concomitant]
     Active Substance: ATROPINE SULFATE\DIPHENOXYLATE
  3. ONDANSETRON [Concomitant]
     Active Substance: ONDANSETRON
  4. METOPROLOL SUCCINATE. [Concomitant]
     Active Substance: METOPROLOL SUCCINATE
  5. POTASSIUM [POTASSIUM CHLORIDE] [Concomitant]
  6. LISINOPRIL. [Concomitant]
     Active Substance: LISINOPRIL
  7. PAROXETINE. [Concomitant]
     Active Substance: PAROXETINE
  8. WARFARIN [Concomitant]
     Active Substance: WARFARIN
  9. HYDROCHLOROTHIAZIDE. [Concomitant]
     Active Substance: HYDROCHLOROTHIAZIDE
  10. FUROSEMIDE. [Concomitant]
     Active Substance: FUROSEMIDE
  11. NEXAVAR [Suspect]
     Active Substance: SORAFENIB
     Indication: HEPATOCELLULAR CARCINOMA
     Dosage: 200 MG, QD
     Route: 048
  12. LEVOTHYROXIN [Concomitant]
     Active Substance: LEVOTHYROXINE
  13. TRAMADOL. [Concomitant]
     Active Substance: TRAMADOL
  14. LACTULOSE. [Concomitant]
     Active Substance: LACTULOSE

REACTIONS (5)
  - Mental status changes [Recovered/Resolved]
  - Ammonia increased [Recovered/Resolved]
  - Hospitalisation [Recovered/Resolved]
  - Off label use [None]
  - Fall [Recovered/Resolved]

NARRATIVE: CASE EVENT DATE: 20171108
